FAERS Safety Report 4345045-5 (Version None)
Quarter: 2004Q2

REPORT INFORMATION
  Report Type: 
  Country: None (occurrence: None)
  Receive Date: 20040420
  Receipt Date: 20040408
  Transmission Date: 20050107
  Serious: Yes (Hospitalization)
  Sender: FDA-Public Use
  Company Number: K200400529

PATIENT
  Age: 72 Year
  Sex: Female

DRUGS (6)
  1. ALTACE [Suspect]
     Indication: ESSENTIAL HYPERTENSION
     Dosage: 5 MG, QD, ORAL
     Route: 048
     Dates: start: 19890101
  2. STABLON (TIANEPTINE) [Suspect]
     Indication: DEPRESSION
     Dosage: 37.5 MG, QD, ORAL
     Route: 048
     Dates: start: 19980101
  3. OXAZEPAM [Suspect]
     Indication: ANXIETY
     Dosage: 10 MG, QD, ORAL
     Route: 048
  4. FENOFIBRATE [Suspect]
     Indication: HYPERLIPIDAEMIA
     Dosage: 200 MG, QD, ORAL
     Route: 048
  5. LASIX [Concomitant]
  6. ZANIDIP (LERCANIDIPNE HYDROCHLORIDE) [Concomitant]

REACTIONS (2)
  - DRUG ERUPTION [None]
  - ECZEMA [None]
